FAERS Safety Report 26048907 (Version 1)
Quarter: 2025Q4

REPORT INFORMATION
  Report Type: Spontaneous
  Country: EU (occurrence: EU)
  Receive Date: 20251115
  Receipt Date: 20251115
  Transmission Date: 20260117
  Serious: Yes (Hospitalization, Other)
  Sender: TEVA
  Company Number: None

PATIENT
  Age: 47 Year
  Sex: Female
  Weight: 154 kg

DRUGS (12)
  1. EPIRUBICIN [Suspect]
     Active Substance: EPIRUBICIN
     Indication: Breast cancer
     Dosage: TIME INTERVAL: CYCLICAL
     Route: 065
     Dates: start: 20080101
  2. CYCLOPHOSPHAMIDE [Suspect]
     Active Substance: CYCLOPHOSPHAMIDE
     Indication: Breast cancer
     Dosage: TIME INTERVAL: CYCLICAL: TOTAL 6 RACES
     Route: 042
     Dates: start: 20080101
  3. EBASTINE [Concomitant]
     Active Substance: EBASTINE
     Indication: Product used for unknown indication
     Dosage: AERIUS (FRANCE)
     Route: 048
  4. TAXOTERE [Suspect]
     Active Substance: DOCETAXEL
     Indication: Breast cancer
     Dosage: TIME INTERVAL: CYCLICAL
     Route: 065
     Dates: start: 20080401
  5. TAXOTERE [Suspect]
     Active Substance: DOCETAXEL
     Indication: Breast cancer
     Route: 065
     Dates: start: 201307
  6. PERJETA [Suspect]
     Active Substance: PERTUZUMAB
     Indication: HER2 positive breast cancer
     Route: 042
     Dates: start: 20140217, end: 20160229
  7. PERJETA [Suspect]
     Active Substance: PERTUZUMAB
     Indication: HER2 positive breast cancer
     Dosage: TIME INTERVAL: CYCLICAL
     Route: 042
     Dates: start: 20140201
  8. ARIMIDEX [Concomitant]
     Active Substance: ANASTROZOLE
     Indication: Breast cancer
     Route: 048
     Dates: start: 20131217
  9. HERCEPTIN [Suspect]
     Active Substance: TRASTUZUMAB
     Indication: HER2 positive breast cancer
     Dosage: TIME INTERVAL: CYCLICAL
     Route: 042
     Dates: start: 20130801, end: 20160229
  10. HERCEPTIN [Suspect]
     Active Substance: TRASTUZUMAB
     Indication: HER2 positive breast cancer
     Dosage: TIME INTERVAL: CYCLICAL
     Route: 042
     Dates: start: 20131201
  11. HERCEPTIN [Suspect]
     Active Substance: TRASTUZUMAB
     Indication: HER2 positive breast cancer
     Route: 042
     Dates: start: 20130701
  12. FLUOROURACIL [Suspect]
     Active Substance: FLUOROURACIL
     Indication: Breast cancer
     Dosage: TIME INTERVAL: CYCLICAL: TOTAL 6 RACES
     Route: 042
     Dates: start: 20080101

REACTIONS (4)
  - Non-Hodgkin^s lymphoma [Not Recovered/Not Resolved]
  - Second primary malignancy [Not Recovered/Not Resolved]
  - Lymphoma [Not Recovered/Not Resolved]
  - Cardiac disorder [Unknown]

NARRATIVE: CASE EVENT DATE: 20150313
